FAERS Safety Report 6197592-1 (Version None)
Quarter: 2009Q2

REPORT INFORMATION
  Report Type: 
  Country: None (occurrence: None)
  Receive Date: 20090521
  Receipt Date: 20090515
  Transmission Date: 20091009
  Serious: Yes (Other)
  Sender: FDA-Public Use
  Company Number: PHHY2009ZA15426

PATIENT
  Age: 47 Year
  Sex: Male

DRUGS (3)
  1. TASIGNA [Suspect]
     Dosage: 200 MG, BID
     Dates: start: 20090101
  2. DASATINIB [Suspect]
  3. SOLU-MEDROL [Concomitant]
     Indication: SCLERODERMA
     Dosage: UNK
     Dates: end: 20090430

REACTIONS (1)
  - SCLERODERMA [None]
